FAERS Safety Report 14448941 (Version 1)
Quarter: 2018Q1

REPORT INFORMATION
  Report Type: Spontaneous
  Country: GB (occurrence: GB)
  Receive Date: 20180126
  Receipt Date: 20180126
  Transmission Date: 20180509
  Serious: Yes (Hospitalization)
  Sender: FDA-Public Use
  Company Number: GB-OTSUKA-12517579

PATIENT
  Age: 38 Year
  Sex: Female
  Weight: 120.65 kg

DRUGS (2)
  1. CLOZAPINE. [Concomitant]
     Active Substance: CLOZAPINE
     Indication: PRODUCT USED FOR UNKNOWN INDICATION
     Dosage: PRIOR TO STARTING ARIPIPRAZOLE. DOSE WITHDRAWN IN NOV-03 RESTARTED IN 2004.
     Route: 065
     Dates: end: 200311
  2. ARIPIPRAZOLE. [Suspect]
     Active Substance: ARIPIPRAZOLE
     Indication: SCHIZOPHRENIA
     Dosage: AFTER 4 WEEKS ON DRUG, DOSE WAS INCREASED TO 30MG DATES NOT PROVIDED.
     Route: 048
     Dates: start: 200311, end: 200401

REACTIONS (3)
  - Schizophrenia [Unknown]
  - Drug ineffective [Unknown]
  - Weight decreased [Unknown]

NARRATIVE: CASE EVENT DATE: 200312
